FAERS Safety Report 6426544-9 (Version None)
Quarter: 2009Q4

REPORT INFORMATION
  Report Type: 
  Country: None (occurrence: None)
  Receive Date: 20091104
  Receipt Date: 20091026
  Transmission Date: 20100525
  Serious: Yes (Other)
  Sender: FDA-Public Use
  Company Number: US-BAYER-200930997NA

PATIENT
  Age: 27 Year
  Sex: Female

DRUGS (2)
  1. MIRENA [Suspect]
     Indication: CONTRACEPTION
     Dosage: CONTINUOUS
     Route: 015
     Dates: start: 20090529
  2. NORETHINDRONE [Concomitant]
     Indication: CONTRACEPTION
     Dates: start: 20090901

REACTIONS (2)
  - DEVICE DISLOCATION [None]
  - MEDICAL DEVICE COMPLICATION [None]
